FAERS Safety Report 7675519-0 (Version None)
Quarter: 2011Q3

REPORT INFORMATION
  Report Type: 
  Country: None (occurrence: None)
  Receive Date: 20110810
  Receipt Date: 20110330
  Transmission Date: 20111222
  Serious: No
  Sender: FDA-Public Use
  Company Number: US-BAYER-2011-028252

PATIENT
  Age: 17 Year
  Sex: Female

DRUGS (1)
  1. BEYAZ [Suspect]
     Indication: MENSTRUATION IRREGULAR
     Dosage: UNK
     Route: 048
     Dates: start: 20110101

REACTIONS (1)
  - HYPOMENORRHOEA [None]
